FAERS Safety Report 9209219 (Version 2)
Quarter: 2013Q4

REPORT INFORMATION
  Report Type: Report from Study
  Country: DE (occurrence: DE)
  Receive Date: 20130404
  Receipt Date: 20131106
  Transmission Date: 20140711
  Serious: Yes (Other)
  Sender: FDA-Public Use
  Company Number: DE-SANOFI-AVENTIS-2013SA035381

PATIENT
  Age: 80 Year
  Sex: Male
  Weight: 59 kg

DRUGS (4)
  1. MULTAQ [Suspect]
     Indication: ATRIAL FIBRILLATION
     Route: 048
     Dates: start: 20120612, end: 20120625
  2. LISINOPRIL [Concomitant]
  3. PLATELET AGGREGATION INHIBITORS [Concomitant]
     Indication: THROMBOSIS PROPHYLAXIS
  4. VIT K ANTAGONISTS [Concomitant]

REACTIONS (1)
  - Atrial fibrillation [Unknown]
